FAERS Safety Report 11157717 (Version 1)
Quarter: 2015Q2

REPORT INFORMATION
  Report Type: Spontaneous
  Country: US (occurrence: None)
  Receive Date: 20150601
  Receipt Date: 20150601
  Transmission Date: 20150821
  Serious: Yes (Other)
  Sender: FDA-Public Use
  Company Number: 2015-001086

PATIENT
  Sex: Female

DRUGS (1)
  1. ESTRACE [Suspect]
     Active Substance: ESTRADIOL
     Route: 067

REACTIONS (5)
  - Transient ischaemic attack [None]
  - Amnesia [None]
  - Visual impairment [None]
  - Dizziness [None]
  - Headache [None]
